FAERS Safety Report 4973881-0 (Version None)
Quarter: 2006Q2

REPORT INFORMATION
  Report Type: 
  Country: None (occurrence: None)
  Receive Date: 20060410
  Receipt Date: 20060329
  Transmission Date: 20061013
  Serious: Yes (Other)
  Sender: FDA-Public Use
  Company Number: 200514788BCC

PATIENT
  Age: 50 Year
  Sex: Female
  Weight: 113.3993 kg

DRUGS (4)
  1. ALEVE [Suspect]
     Indication: HEADACHE
     Dosage: 220 MG ONCE ORAL
     Route: 048
     Dates: start: 20051124
  2. CYMBALTA [Concomitant]
  3. NORVASC [Concomitant]
  4. CORTISONE ACETATE TAB [Concomitant]

REACTIONS (5)
  - ANAPHYLACTIC REACTION [None]
  - ASTHMA [None]
  - HYPERSENSITIVITY [None]
  - PANIC ATTACK [None]
  - SHOCK [None]
